FAERS Safety Report 8820386 (Version 1)
Quarter: 2012Q4

REPORT INFORMATION
  Report Type: 
  Country: KR (occurrence: KR)
  Receive Date: 20121002
  Receipt Date: 20121002
  Transmission Date: 20130627
  Serious: Yes (Death)
  Sender: FDA-Public Use
  Company Number: KR-SANOFI-AVENTIS-2012SA068841

PATIENT
  Age: 48 Year
  Sex: Male
  Weight: 57 kg

DRUGS (1)
  1. LANTUS [Suspect]
     Indication: DIABETES MELLITUS
     Dosage: Dose:22 unit(s)
     Route: 058
     Dates: start: 20110909, end: 20120915

REACTIONS (1)
  - Death [Fatal]
